FAERS Safety Report 5683226-9 (Version None)
Quarter: 2008Q1

REPORT INFORMATION
  Report Type: 
  Country: None (occurrence: None)
  Receive Date: 20080326
  Receipt Date: 20080312
  Transmission Date: 20080703
  Serious: Yes (Other)
  Sender: FDA-Public Use
  Company Number: USPFP-S-20080002

PATIENT
  Age: 48 Year
  Sex: Female

DRUGS (7)
  1. NAVELBINE [Suspect]
     Indication: BREAST CANCER
  2. GEMCITABINE [Suspect]
     Indication: BREAST CANCER
  3. TAXOTERE [Suspect]
     Indication: BREAST CANCER
     Dates: start: 20071101, end: 20080120
  4. CYCLOPHOSPHAMIDE [Suspect]
     Indication: BREAST CANCER
  5. CISPLATIN [Suspect]
     Indication: BREAST CANCER
  6. TRASTUZUMAB [Suspect]
     Indication: BREAST CANCER
  7. NEUPOGEN [Concomitant]

REACTIONS (5)
  - BLISTER [None]
  - OEDEMA PERIPHERAL [None]
  - PAIN OF SKIN [None]
  - SKIN BURNING SENSATION [None]
  - SKIN EXFOLIATION [None]
